FAERS Safety Report 11652034 (Version 2)
Quarter: 2016Q3

REPORT INFORMATION
  Report Type: Spontaneous
  Country: US (occurrence: US)
  Receive Date: 20151022
  Receipt Date: 20160926
  Transmission Date: 20161109
  Serious: No
  Sender: FDA-Public Use
  Company Number: US-PFIZER INC-2015350753

PATIENT
  Age: 54 Year
  Sex: Male

DRUGS (22)
  1. CELEBREX [Suspect]
     Active Substance: CELECOXIB
     Dosage: 200 MG, 1X/DAY
     Route: 048
  2. TENORMIN [Concomitant]
     Active Substance: ATENOLOL
     Dosage: 50 MG, 1X/DAY
     Route: 048
  3. BENZAMYCIN [Concomitant]
     Active Substance: BENZOYL PEROXIDE\ERYTHROMYCIN
     Dosage: UNK, 2X/DAY
  4. TRUVADA [Concomitant]
     Active Substance: EMTRICITABINE\TENOFOVIR DISOPROXIL FUMARATE
     Dosage: 1 DF ([EMTRICITABINE: 200]/ [TENOFOVIR: 300 MG]), DAILY
     Route: 048
  5. LYRICA [Suspect]
     Active Substance: PREGABALIN
     Dosage: 225 MG, 2X/DAY
     Route: 048
  6. KERYDIN [Concomitant]
     Active Substance: TAVABOROLE
     Dosage: APPLY 1 FILM DAILY
     Route: 061
  7. LEXAPRO [Concomitant]
     Active Substance: ESCITALOPRAM OXALATE
     Dosage: 10 MG, DAILY
     Route: 048
  8. ADVAIR DISKUS [Concomitant]
     Active Substance: FLUTICASONE PROPIONATE\SALMETEROL XINAFOATE
     Dosage: 1 PUFF, 2X/DAY[FLUTICASONE250MCG]/[SALMETEROL50MCG]
     Route: 045
  9. APRESOLINE HYDROCHLORIDE [Concomitant]
     Active Substance: HYDRALAZINE HYDROCHLORIDE
     Dosage: 50 MG, 3X/DAY
     Route: 048
  10. SINGULAIR [Concomitant]
     Active Substance: MONTELUKAST SODIUM
     Dosage: 10 MG, 1X/DAY NIGHTLY
     Route: 048
  11. MACROBID [Concomitant]
     Active Substance: NITROFURANTOIN\NITROFURANTOIN MONOHYDRATE
     Dosage: 100 MG, 1X/DAY
     Route: 048
  12. KENALOG [Concomitant]
     Active Substance: TRIAMCINOLONE ACETONIDE
     Dosage: APPLY 2 TIMES DAILY
     Route: 061
  13. ACLOVATE [Concomitant]
     Active Substance: ALCLOMETASONE DIPROPIONATE
     Dosage: UNK, 2X/DAY
     Route: 061
  14. ZOLOFT [Concomitant]
     Active Substance: SERTRALINE HYDROCHLORIDE
     Dosage: 100 MG, 1X/DAY
     Route: 048
  15. ULTRAM [Concomitant]
     Active Substance: TRAMADOL HYDROCHLORIDE
     Indication: PAIN
     Dosage: 50 MG, EVERY 6 HOURS AS NEEDED
     Route: 048
  16. VIAGRA [Suspect]
     Active Substance: SILDENAFIL CITRATE
     Dosage: 100 MG, 1X/DAY
     Route: 048
  17. CLEOCIN T [Concomitant]
     Active Substance: CLINDAMYCIN PHOSPHATE
     Dosage: UNK, 2X/DAY
     Route: 061
  18. NOVOLIN/HUMULIN [Concomitant]
     Dosage: UNK, 2X/DAY
  19. LIORESAL [Concomitant]
     Active Substance: BACLOFEN
     Dosage: 10 MG, 3X/DAY
     Route: 048
  20. VALIUM [Concomitant]
     Active Substance: DIAZEPAM
     Indication: ANXIETY
     Dosage: 5 MG, EVERY 6 HOURS AS NEEDED
     Route: 048
  21. VALTREX [Concomitant]
     Active Substance: VALACYCLOVIR HYDROCHLORIDE
     Dosage: 1000 MG, DAILY
     Route: 048
  22. AMBIEN [Concomitant]
     Active Substance: ZOLPIDEM TARTRATE
     Indication: SOMNOLENCE
     Dosage: 10 MG, NIGHTLY AS NEEDED
     Route: 048

REACTIONS (1)
  - Toothache [Unknown]
